FAERS Safety Report 7552580-5 (Version None)
Quarter: 2011Q2

REPORT INFORMATION
  Report Type: 
  Country: None (occurrence: None)
  Receive Date: 20110616
  Receipt Date: 20110608
  Transmission Date: 20111010
  Serious: Yes (Other)
  Sender: FDA-Public Use
  Company Number: GB-B.I. PHARMACEUTICALS,INC./RIDGEFIELD-2011-UK-00559UK

PATIENT
  Age: 10 Year
  Sex: Female
  Weight: 28.4 kg

DRUGS (1)
  1. CLONIDINE [Suspect]
     Indication: TIC
     Dosage: 2/1 DAYS
     Route: 048
     Dates: start: 20100101

REACTIONS (1)
  - ANAL DILATATION [None]
